FAERS Safety Report 14712295 (Version 2)
Quarter: 2018Q2

REPORT INFORMATION
  Report Type: Spontaneous
  Country: BR (occurrence: BR)
  Receive Date: 20180404
  Receipt Date: 20180417
  Transmission Date: 20180711
  Serious: Yes (Other)
  Sender: FDA-Public Use
  Company Number: BR-ABBVIE-18P-020-2259844-00

PATIENT
  Sex: Female
  Weight: 58 kg

DRUGS (3)
  1. RISPERIDONE. [Concomitant]
     Active Substance: RISPERIDONE
     Indication: SLEEP DISORDER THERAPY
     Dosage: AT NIGHT, CONCOMITANTLY WITH DEPAKENE; ONGOING
     Route: 048
     Dates: start: 2017
  2. FLUOXETINE [Concomitant]
     Active Substance: FLUOXETINE HYDROCHLORIDE
     Indication: ANXIOLYTIC THERAPY
     Dosage: AFTER BREAKFAST/ AT NIGHT
     Route: 048
     Dates: start: 2014, end: 2015
  3. DEPAKENE [Suspect]
     Active Substance: VALPROIC ACID
     Indication: DEPRESSION
     Dosage: MORNING/ NIGHT
     Route: 048
     Dates: start: 2017

REACTIONS (15)
  - Asphyxia [Recovering/Resolving]
  - Hyperhidrosis [Recovering/Resolving]
  - Disease susceptibility [Unknown]
  - Fatigue [Not Recovered/Not Resolved]
  - Feeling abnormal [Not Recovered/Not Resolved]
  - Feeling hot [Recovering/Resolving]
  - Dyspnoea [Recovering/Resolving]
  - Product use in unapproved indication [Unknown]
  - Off label use [Unknown]
  - Abdominal distension [Recovering/Resolving]
  - Confusional state [Recovering/Resolving]
  - Drug ineffective [Unknown]
  - Restlessness [Not Recovered/Not Resolved]
  - Disturbance in attention [Recovering/Resolving]
  - Product quality issue [Unknown]

NARRATIVE: CASE EVENT DATE: 2017
